FAERS Safety Report 15563009 (Version 1)
Quarter: 2018Q4

REPORT INFORMATION
  Report Type: Spontaneous
  Country: US (occurrence: US)
  Receive Date: 20181029
  Receipt Date: 20181029
  Transmission Date: 20190205
  Serious: Yes (Other)
  Sender: FDA-Public Use
  Company Number: US-SHIRE-US201840746

PATIENT
  Age: 43 Year
  Sex: Female

DRUGS (1)
  1. TAKHZYRO [Suspect]
     Active Substance: LANADELUMAB-FLYO
     Indication: HEREDITARY ANGIOEDEMA
     Dosage: 300 MG, BIWEEKLY
     Route: 058
     Dates: start: 20180920

REACTIONS (2)
  - Influenza like illness [Unknown]
  - Influenza [Unknown]

NARRATIVE: CASE EVENT DATE: 20180920
